FAERS Safety Report 10740795 (Version 3)
Quarter: 2015Q2

REPORT INFORMATION
  Report Type: Spontaneous
  Country: SE (occurrence: SE)
  Receive Date: 20150127
  Receipt Date: 20150515
  Transmission Date: 20150821
  Serious: Yes (Death, Other)
  Sender: FDA-Public Use
  Company Number: SE-SA-2015SA009221

PATIENT
  Age: 31 Month
  Sex: Male
  Weight: 12.4 kg

DRUGS (7)
  1. SODIUM CHLORIDE. [Concomitant]
     Active Substance: SODIUM CHLORIDE
     Route: 055
  2. LACTULOSE. [Concomitant]
     Active Substance: LACTULOSE
  3. VENTOLINE [Concomitant]
     Active Substance: ALBUTEROL
     Route: 055
  4. ACETYLSALICYLIC ACID [Concomitant]
     Active Substance: ASPIRIN
  5. MYOZYME [Suspect]
     Active Substance: ALGLUCOSIDASE ALFA
     Indication: GLYCOGEN STORAGE DISEASE TYPE II
     Route: 041
     Dates: start: 2012, end: 20150123
  6. BISOPROLOL [Concomitant]
     Active Substance: BISOPROLOL
  7. SPIRONOLACTONE. [Concomitant]
     Active Substance: SPIRONOLACTONE
     Dosage: DOSE: 10 MG+0+5 MG

REACTIONS (8)
  - Off label use [Unknown]
  - Cardiac failure acute [Unknown]
  - Arrhythmia [Fatal]
  - Pulmonary congestion [Unknown]
  - Nasopharyngitis [Unknown]
  - Cardiac arrest [Fatal]
  - Fatigue [Unknown]
  - Blood pressure increased [Unknown]

NARRATIVE: CASE EVENT DATE: 20150123
